FAERS Safety Report 8768669 (Version 1)
Quarter: 2012Q4

REPORT INFORMATION
  Report Type: 
  Country: US (occurrence: US)
  Receive Date: 20120904
  Receipt Date: 20120904
  Transmission Date: 20130627
  Serious: Yes (Other)
  Sender: FDA-Public Use
  Company Number: US-ASTRAZENECA-2012SE64692

PATIENT
  Age: 82 Year
  Sex: Female

DRUGS (2)
  1. PLAVIX [Suspect]
     Route: 048
  2. NEXIUM [Interacting]
     Route: 048

REACTIONS (4)
  - Drug interaction [Unknown]
  - Myocardial infarction [Unknown]
  - Cerebrovascular accident [Unknown]
  - Drug dose omission [Unknown]
